FAERS Safety Report 17404511 (Version 1)
Quarter: 2020Q1

REPORT INFORMATION
  Report Type: Other
  Country: AU (occurrence: AU)
  Receive Date: 20200211
  Receipt Date: 20200211
  Transmission Date: 20200409
  Serious: Yes (Hospitalization)
  Sender: FDA-Public Use
  Company Number: AU-GE HEALTHCARE LIFE SCIENCES-2020CSU000252

PATIENT

DRUGS (20)
  1. VISIPAQUE [Suspect]
     Active Substance: IODIXANOL
     Indication: ANGIOPLASTY
  2. VISIPAQUE [Suspect]
     Active Substance: IODIXANOL
     Indication: PRODUCT USED FOR UNKNOWN INDICATION
  3. PROPOFOL. [Concomitant]
     Active Substance: PROPOFOL
     Indication: INDUCTION OF ANAESTHESIA
     Dosage: UNK
     Dates: start: 20141202, end: 20141202
  4. HEPARIN CALCIUM [Concomitant]
     Active Substance: HEPARIN CALCIUM
     Indication: ANGIOPLASTY
     Dosage: UNK
     Dates: start: 20141202
  5. UROKINASE [Suspect]
     Active Substance: UROKINASE
     Indication: ANGIOPLASTY
     Dosage: UNK
     Route: 065
     Dates: start: 20141202
  6. SEVOFLURANE. [Concomitant]
     Active Substance: SEVOFLURANE
     Indication: INDUCTION OF ANAESTHESIA
     Dosage: UNK
     Dates: start: 20141202, end: 20141202
  7. FENTANYL. [Concomitant]
     Active Substance: FENTANYL
     Indication: INDUCTION OF ANAESTHESIA
     Dosage: UNK
     Dates: start: 20141202, end: 20141202
  8. CEFAZOLIN SODIUM. [Concomitant]
     Active Substance: CEFAZOLIN SODIUM
     Dosage: UNK
     Dates: start: 20141202, end: 20141202
  9. VISIPAQUE [Suspect]
     Active Substance: IODIXANOL
     Indication: VENOGRAM
     Dosage: UNK, SINGLE
     Route: 042
     Dates: start: 20141202, end: 20141202
  10. SEVOFLURANE. [Concomitant]
     Active Substance: SEVOFLURANE
     Indication: ANGIOPLASTY
  11. FENTANYL. [Concomitant]
     Active Substance: FENTANYL
     Indication: ANGIOPLASTY
  12. MIDAZOLAM HYDROCHLORIDE. [Concomitant]
     Active Substance: MIDAZOLAM HYDROCHLORIDE
     Indication: INDUCTION OF ANAESTHESIA
     Dosage: UNK
     Dates: start: 20141202, end: 20141202
  13. MIDAZOLAM HYDROCHLORIDE. [Concomitant]
     Active Substance: MIDAZOLAM HYDROCHLORIDE
     Indication: VENOGRAM
  14. MIDAZOLAM HYDROCHLORIDE. [Concomitant]
     Active Substance: MIDAZOLAM HYDROCHLORIDE
     Indication: ANGIOPLASTY
  15. FENTANYL. [Concomitant]
     Active Substance: FENTANYL
     Indication: VENOGRAM
  16. SEVOFLURANE. [Concomitant]
     Active Substance: SEVOFLURANE
     Indication: VENOGRAM
  17. PROPOFOL. [Concomitant]
     Active Substance: PROPOFOL
     Indication: ANGIOPLASTY
  18. PROPOFOL. [Concomitant]
     Active Substance: PROPOFOL
     Indication: VENOGRAM
  19. POVIDONE-IODINE. [Concomitant]
     Active Substance: POVIDONE-IODINE
     Dosage: UNK
     Dates: start: 20141202, end: 20141202
  20. CHLORHEXIDINE [Concomitant]
     Active Substance: CHLORHEXIDINE
     Dosage: UNK

REACTIONS (3)
  - Erythema [Recovered/Resolved]
  - Piloerection [Recovered/Resolved]
  - Hypotension [Recovered/Resolved]

NARRATIVE: CASE EVENT DATE: 20141202
